FAERS Safety Report 24345824 (Version 2)
Quarter: 2025Q1

REPORT INFORMATION
  Report Type: Spontaneous
  Country: US (occurrence: US)
  Receive Date: 20240920
  Receipt Date: 20250107
  Transmission Date: 20250409
  Serious: No
  Sender: BRISTOL-MYERS SQUIBB COMPANY
  Company Number: US-BRISTOL-MYERS SQUIBB COMPANY-2024-149750

PATIENT
  Age: 55 Year
  Sex: Female

DRUGS (3)
  1. REVLIMID [Suspect]
     Active Substance: LENALIDOMIDE
     Indication: Plasma cell myeloma
     Route: 048
  2. REVLIMID [Suspect]
     Active Substance: LENALIDOMIDE
     Route: 048
  3. KETOPROFEN [Suspect]
     Active Substance: KETOPROFEN
     Indication: Product used for unknown indication

REACTIONS (3)
  - Hypersensitivity [Recovering/Resolving]
  - Rash [Recovering/Resolving]
  - Respiratory syncytial virus infection [Unknown]
